FAERS Safety Report 17468965 (Version 2)
Quarter: 2022Q1

REPORT INFORMATION
  Report Type: Report from Study
  Country: US (occurrence: US)
  Receive Date: 20200227
  Receipt Date: 20220301
  Transmission Date: 20220423
  Serious: No
  Sender: FDA-Public Use
  Company Number: US-AEGERION PHARMACEUTICAL, INC-AEGR004534

PATIENT
  Sex: Female
  Weight: 53 kg

DRUGS (18)
  1. METRELEPTIN [Suspect]
     Active Substance: METRELEPTIN
     Indication: Lipodystrophy acquired
     Dosage: 5 MG, QD
     Dates: start: 20130418
  2. METRELEPTIN [Suspect]
     Active Substance: METRELEPTIN
     Dosage: 5 MG, BID
  3. REGULAR INSULIN U500 [Concomitant]
     Indication: Diabetes mellitus
     Dosage: 0.2 ML, TID
     Route: 058
     Dates: start: 20190909
  4. METFORMIN [Concomitant]
     Active Substance: METFORMIN HYDROCHLORIDE
     Indication: Diabetes mellitus
     Dosage: 500 MG, BID
     Route: 048
     Dates: start: 20161105
  5. ACTOS [Concomitant]
     Active Substance: PIOGLITAZONE HYDROCHLORIDE
     Indication: Diabetes mellitus
     Dosage: 45 MG, QD
     Route: 048
     Dates: start: 20190428
  6. LOSARTAN [Concomitant]
     Active Substance: LOSARTAN
     Indication: Hypertension
     Dosage: 25 MG, QD
     Route: 048
     Dates: start: 2008
  7. NIACIN [Concomitant]
     Active Substance: NIACIN
     Indication: Hyperlipidaemia
     Dosage: 500 MG, QD
     Route: 048
     Dates: start: 2010
  8. CITALOPRAM [Concomitant]
     Active Substance: CITALOPRAM HYDROBROMIDE
     Indication: Depression
     Dosage: 40 MG, QD
     Route: 048
     Dates: start: 20170313
  9. OXYBUTYNIN CHLORIDE [Concomitant]
     Active Substance: OXYBUTYNIN CHLORIDE
     Indication: Hypertonic bladder
     Dosage: 15 MG, TID
     Route: 048
     Dates: start: 20170313
  10. TRAMADOL [Concomitant]
     Active Substance: TRAMADOL
     Indication: Pain
     Dosage: 50 MG, PRN
     Route: 048
     Dates: start: 201704
  11. METHADONE [Concomitant]
     Active Substance: METHADONE HYDROCHLORIDE
     Indication: Pain
     Dosage: 5 MG, BID PRN
     Dates: start: 20180913
  12. FLONASE                            /00908302/ [Concomitant]
     Indication: Hypersensitivity
     Dosage: 50 MG, PRN
     Route: 045
     Dates: start: 2010
  13. CYMBALTA [Concomitant]
     Active Substance: DULOXETINE HYDROCHLORIDE
     Indication: Bipolar disorder
     Dosage: 30 MG, QD
     Route: 048
     Dates: start: 20180417
  14. ATORVASTATIN [Concomitant]
     Active Substance: ATORVASTATIN
     Indication: Hyperlipidaemia
     Dosage: 40 MG, QD
     Route: 048
     Dates: start: 20190328
  15. VISTARIL                           /00058402/ [Concomitant]
     Indication: Insomnia
     Dosage: 25 MG, QD
     Route: 048
  16. LYRICA [Concomitant]
     Active Substance: PREGABALIN
     Indication: Neuropathy peripheral
     Dosage: 100 MG, TID
     Route: 048
     Dates: start: 20190222
  17. ZOFRAN                             /00955301/ [Concomitant]
     Indication: Nausea
     Dosage: 8 MG, PRN
     Route: 048
     Dates: start: 20190222
  18. MIRALAX [Concomitant]
     Active Substance: POLYETHYLENE GLYCOL 3350
     Indication: Constipation
     Dosage: 17 G, QD
     Route: 048
     Dates: start: 20190222

REACTIONS (17)
  - Condition aggravated [Unknown]
  - Cellulitis [Unknown]
  - Protein total increased [Unknown]
  - Urinary tract infection [Unknown]
  - Arthropod bite [Unknown]
  - Vitamin D deficiency [Unknown]
  - Asthenia [Unknown]
  - Balance disorder [Unknown]
  - Anodontia [Unknown]
  - Upper respiratory tract infection [Unknown]
  - Hypertriglyceridaemia [Unknown]
  - Blood glucose abnormal [Unknown]
  - Nausea [Unknown]
  - Headache [Unknown]
  - Hypoglycaemia [Unknown]
  - Hypoglycaemia [Unknown]
  - Drug ineffective [Unknown]
